FAERS Safety Report 6939102-4 (Version None)
Quarter: 2010Q3

REPORT INFORMATION
  Report Type: 
  Country: None (occurrence: None)
  Receive Date: 20100824
  Receipt Date: 20100810
  Transmission Date: 20110219
  Serious: Yes (Other)
  Sender: FDA-Public Use
  Company Number: PHHY2010FR45704

PATIENT
  Age: 69 Year
  Sex: Female

DRUGS (12)
  1. TAREG [Suspect]
     Dosage: 80 MG, UNK
     Dates: end: 20100501
  2. LASIX [Suspect]
  3. GLEEVEC [Concomitant]
     Indication: CHRONIC MYELOID LEUKAEMIA
     Dosage: UNK
     Dates: start: 20090815, end: 20090918
  4. SINEMET [Concomitant]
     Indication: PARKINSON'S DISEASE
     Dosage: 200 MG, UNK
     Dates: start: 20080101
  5. MODOPAR [Concomitant]
     Indication: PARKINSON'S DISEASE
     Dosage: UNK
  6. MOTILIUM [Concomitant]
  7. CRESTOR [Concomitant]
  8. FORLAX [Concomitant]
  9. DEDROGYL [Concomitant]
  10. STRUCTUM [Concomitant]
     Dosage: UNK
     Dates: start: 20100511
  11. KARDEGIC [Concomitant]
     Indication: THROMBOCYTOSIS
     Dosage: 160 MG, UNK
     Dates: start: 20090601, end: 20091001
  12. PLAVIX [Concomitant]
     Indication: THROMBOCYTOSIS

REACTIONS (6)
  - BONE MARROW FAILURE [None]
  - ERYTHROBLASTOSIS [None]
  - GRANULOCYTE COUNT DECREASED [None]
  - MEGAKARYOCYTES ABNORMAL [None]
  - NEUTROPENIA [None]
  - THROMBOCYTOPENIA [None]
